FAERS Safety Report 8816186 (Version 2)
Quarter: 2012Q4

REPORT INFORMATION
  Report Type: 
  Country: JP (occurrence: JP)
  Receive Date: 20120929
  Receipt Date: 20121106
  Transmission Date: 20130627
  Serious: Yes (Hospitalization, Disabling, Other)
  Sender: FDA-Public Use
  Company Number: JP-009507513-1007USA02175

PATIENT
  Age: 42 Year
  Sex: Female
  Weight: 72 kg

DRUGS (7)
  1. HYDROCORTISONE SODIUM PHOSPHATE [Suspect]
     Indication: ASTHMA
     Dosage: 100 mg, Once
     Route: 042
     Dates: start: 20061202, end: 20070109
  2. SAXIZON [Suspect]
     Indication: ASTHMA
     Dosage: 200 mg, qd
     Route: 042
     Dates: start: 20060223, end: 20061201
  3. SOLU-MEDROL [Suspect]
     Indication: ASTHMA
     Dosage: 40 mg, qd
     Route: 042
     Dates: start: 20050204, end: 20050215
  4. CELESTAMINE [Suspect]
     Route: 048
  5. RINDERON (BETAMETHASONE SODIUM PHOSPHATE) [Concomitant]
     Dosage: 4 mg, qd
     Route: 048
     Dates: start: 20050216, end: 20080508
  6. RINDERON (BETAMETHASONE) [Concomitant]
     Dosage: 40 mg, qd
     Route: 048
     Dates: start: 20050908, end: 20090323
  7. PREDONINE [Concomitant]
     Dosage: UNK
     Route: 048
     Dates: start: 20040106, end: 20050303

REACTIONS (4)
  - Osteonecrosis [Unknown]
  - Osteoporosis [Unknown]
  - Spinal compression fracture [Unknown]
  - Cataract [Unknown]
